FAERS Safety Report 6266014-4 (Version None)
Quarter: 2009Q3

REPORT INFORMATION
  Report Type: 
  Country: None (occurrence: None)
  Receive Date: 20090709
  Receipt Date: 20090709
  Transmission Date: 20100115
  Serious: No
  Sender: FDA-Public Use
  Company Number: None

PATIENT
  Age: 39 Year
  Sex: Male
  Weight: 70.3075 kg

DRUGS (8)
  1. SUTENT [Suspect]
     Indication: RENAL CELL CARCINOMA
     Dosage: 25 MG -1 TABLET- DAILY PO
     Route: 048
     Dates: start: 20090521, end: 20090623
  2. OXYCODONE HCL AND ACETAMINOPHEN [Concomitant]
  3. PHENERGAN [Concomitant]
  4. ATIVAN [Concomitant]
  5. METOPROLOL TARTRATE [Concomitant]
  6. COLACE [Concomitant]
  7. NORVASC [Concomitant]
  8. COUMADIN [Concomitant]

REACTIONS (1)
  - VISION BLURRED [None]
